FAERS Safety Report 13990189 (Version 1)
Quarter: 2017Q3

REPORT INFORMATION
  Report Type: Report from Study
  Country: US (occurrence: BR)
  Receive Date: 20170920
  Receipt Date: 20170920
  Transmission Date: 20171128
  Serious: Yes (Death)
  Sender: FDA-Public Use
  Company Number: US-SUNOVION-2017SUN004044

PATIENT
  Sex: Male
  Weight: 35 kg

DRUGS (1)
  1. INDACATEROL AND GLYCOPYRROLATE [Suspect]
     Active Substance: GLYCOPYRROLATE\INDACATEROL MALEATE
     Indication: PRODUCT USED FOR UNKNOWN INDICATION
     Dosage: 1 DF (GLYCOPYRRONIUM BROMIDE 50 UG/ INDACATEROL 110 UG), QD
     Route: 055

REACTIONS (4)
  - Acute pulmonary oedema [Fatal]
  - Respiratory failure [Fatal]
  - Emphysema [Fatal]
  - Atrial fibrillation [Fatal]
